FAERS Safety Report 11043980 (Version 1)
Quarter: 2015Q2

REPORT INFORMATION
  Report Type: Spontaneous
  Country: IT (occurrence: None)
  Receive Date: 20150415
  Receipt Date: 20150415
  Transmission Date: 20150821
  Serious: Yes (Death, Hospitalization)
  Sender: FDA-Public Use
  Company Number: NSR_02040_2015

PATIENT
  Age: 76 Year
  Sex: Female

DRUGS (5)
  1. RAMIPRIL. [Concomitant]
     Active Substance: RAMIPRIL
  2. DIAZEPAM. [Concomitant]
     Active Substance: DIAZEPAM
  3. CLORTALIDON [Concomitant]
  4. ALLOPURINOL (ALLOPURINOL) [Suspect]
     Active Substance: ALLOPURINOL
     Indication: HYPERURICAEMIA
  5. OCTATROPINE [Concomitant]

REACTIONS (10)
  - Pyrexia [None]
  - Multi-organ failure [None]
  - Pulmonary oedema [None]
  - Arteriosclerosis [None]
  - Nausea [None]
  - Vomiting [None]
  - Toxic epidermal necrolysis [None]
  - Abdominal pain [None]
  - Diarrhoea [None]
  - Anal haemorrhage [None]
